FAERS Safety Report 11167915 (Version 1)
Quarter: 2015Q2

REPORT INFORMATION
  Report Type: Report from Study
  Country: DE (occurrence: US)
  Receive Date: 20150605
  Receipt Date: 20150605
  Transmission Date: 20150821
  Serious: Yes (Other)
  Sender: FDA-Public Use
  Company Number: DE-BAYER-2015-289460

PATIENT
  Age: 44 Year

DRUGS (1)
  1. STIVARGA [Suspect]
     Active Substance: REGORAFENIB
     Indication: METASTASES TO LIVER
     Dosage: 3 PILLS AND 4 PILLS ON ALTERNATE DAYS

REACTIONS (4)
  - Carcinoembryonic antigen increased [None]
  - Metastases to liver [None]
  - Nasopharyngitis [None]
  - Drug ineffective [None]
